FAERS Safety Report 8829620 (Version 1)
Quarter: 2012Q4

REPORT INFORMATION
  Report Type: 
  Country: US (occurrence: US)
  Receive Date: 20121008
  Receipt Date: 20121008
  Transmission Date: 20130627
  Serious: Yes (Hospitalization)
  Sender: FDA-Public Use
  Company Number: US-TEVA-362553USA

PATIENT
  Age: 61 Year
  Sex: Male

DRUGS (13)
  1. ETOPOSIDE [Suspect]
     Indication: LUNG SQUAMOUS CELL CARCINOMA STAGE UNSPECIFIED
     Dosage: 50 mg/m2 (days 1-5 of each cycle)
     Route: 042
  2. ECHINACEA [Interacting]
     Route: 065
  3. CISPLATIN [Concomitant]
     Indication: LUNG SQUAMOUS CELL CARCINOMA STAGE UNSPECIFIED
     Dosage: 50 mg/m2 (day 1 of each cycle)
     Route: 042
  4. OMEPRAZOLE [Concomitant]
     Route: 065
  5. ENALAPRIL [Concomitant]
     Route: 065
  6. HYDROCODONE, PARACETAMOL [Concomitant]
     Route: 065
  7. PROCHLORPERAZINE [Concomitant]
     Route: 065
  8. ONDANSETRON [Concomitant]
     Route: 065
  9. VITAMIN B12 ANALOGUES [Concomitant]
     Route: 065
  10. VITAMIN E [Concomitant]
     Route: 065
  11. VITAMIN D [Concomitant]
     Route: 065
  12. ASCORBIC ACID [Concomitant]
     Route: 065
  13. LAETRILE [Concomitant]
     Route: 065

REACTIONS (2)
  - Herbal interaction [Recovered/Resolved]
  - Thrombocytopenia [Unknown]
